FAERS Safety Report 21314289 (Version 1)
Quarter: 2022Q3

REPORT INFORMATION
  Report Type: Spontaneous
  Country: US (occurrence: None)
  Receive Date: 20220909
  Receipt Date: 20220909
  Transmission Date: 20221026
  Serious: No
  Sender: FDA-Public Use
  Company Number: US-ARIS GLOBAL-202110-1765

PATIENT
  Age: 86 Year
  Sex: Male

DRUGS (4)
  1. OXERVATE [Suspect]
     Active Substance: CENEGERMIN-BKBJ
     Indication: Neurotrophic keratopathy
     Route: 047
  2. VALACYCLOVIR [Concomitant]
     Active Substance: VALACYCLOVIR HYDROCHLORIDE
     Route: 048
  3. DEXAMETHASONE\NEOMYCIN\POLYMYXIN B [Concomitant]
     Active Substance: DEXAMETHASONE\NEOMYCIN\POLYMYXIN B
  4. ERYTHROMYCIN [Concomitant]
     Active Substance: ERYTHROMYCIN
     Route: 061

REACTIONS (1)
  - Corneal deposits [Not Recovered/Not Resolved]
